FAERS Safety Report 10809774 (Version 1)
Quarter: 2015Q1

REPORT INFORMATION
  Report Type: Report from Study
  Country: US (occurrence: US)
  Receive Date: 20150217
  Receipt Date: 20150217
  Transmission Date: 20150721
  Serious: No
  Sender: FDA-Public Use
  Company Number: US-ABBVIE-14K-163-1227868-00

PATIENT
  Age: 31 Year
  Sex: Female

DRUGS (6)
  1. HUMIRA [Suspect]
     Active Substance: ADALIMUMAB
     Indication: CROHN^S DISEASE
     Dates: start: 20140313
  2. PREDNISONE. [Concomitant]
     Active Substance: PREDNISONE
     Indication: PRODUCT USED FOR UNKNOWN INDICATION
     Dosage: TAPERED DOWN
     Dates: end: 201403
  3. PREDNISONE. [Concomitant]
     Active Substance: PREDNISONE
     Dates: start: 20140313, end: 20140409
  4. HUMIRA [Suspect]
     Active Substance: ADALIMUMAB
     Dates: start: 20140327, end: 20140327
  5. FLINTSTONES [Concomitant]
     Indication: PRODUCT USED FOR UNKNOWN INDICATION
     Dosage: CHILDREN^S VITAMIN
  6. HUMIRA [Suspect]
     Active Substance: ADALIMUMAB
     Dates: start: 20140410

REACTIONS (9)
  - Injection site pain [Recovered/Resolved]
  - Pruritus [Not Recovered/Not Resolved]
  - Skin exfoliation [Not Recovered/Not Resolved]
  - Drug ineffective [Not Recovered/Not Resolved]
  - Odynophagia [Not Recovered/Not Resolved]
  - Injection site pain [Recovered/Resolved]
  - Dry skin [Not Recovered/Not Resolved]
  - Malaise [Not Recovered/Not Resolved]
  - Device issue [Not Recovered/Not Resolved]

NARRATIVE: CASE EVENT DATE: 2014
